FAERS Safety Report 9444410 (Version 1)
Quarter: 2013Q3

REPORT INFORMATION
  Report Type: Spontaneous
  Country: US (occurrence: None)
  Receive Date: 20130806
  Receipt Date: 20130806
  Transmission Date: 20140515
  Serious: No
  Sender: FDA-Public Use
  Company Number: None

PATIENT
  Age: 49 Year
  Sex: Male

DRUGS (1)
  1. TRAZODONE HYDROCHLORIDE [Suspect]
     Indication: INSOMNIA

REACTIONS (5)
  - Nausea [None]
  - Vomiting [None]
  - Myalgia [None]
  - Gastrointestinal tract irritation [None]
  - Oesophageal disorder [None]
